FAERS Safety Report 19628566 (Version 4)
Quarter: 2021Q3

REPORT INFORMATION
  Report Type: Other
  Country: CA (occurrence: CA)
  Receive Date: 20210729
  Receipt Date: 20210902
  Transmission Date: 20211014
  Serious: Yes (Hospitalization)
  Sender: FDA-Public Use
  Company Number: CA-ROCHE-2865919

PATIENT
  Sex: Male

DRUGS (2)
  1. OCREVUS [Suspect]
     Active Substance: OCRELIZUMAB
     Indication: PRIMARY PROGRESSIVE MULTIPLE SCLEROSIS
     Dosage: THEN 600 MG EVERY 6 MONTH
     Route: 042
     Dates: start: 20181025
  2. OCREVUS [Suspect]
     Active Substance: OCRELIZUMAB
     Indication: PRIMARY PROGRESSIVE MULTIPLE SCLEROSIS

REACTIONS (4)
  - Fatigue [Unknown]
  - Urinary tract infection [Recovering/Resolving]
  - Bradykinesia [Not Recovered/Not Resolved]
  - Nephrolithiasis [Not Recovered/Not Resolved]
